FAERS Safety Report 12985037 (Version 1)
Quarter: 2016Q4

REPORT INFORMATION
  Report Type: Spontaneous
  Country: CN (occurrence: CN)
  Receive Date: 20161129
  Receipt Date: 20161129
  Transmission Date: 20170207
  Serious: Yes (Hospitalization)
  Sender: FDA-Public Use
  Company Number: CN-SA-2016SA215986

PATIENT
  Age: 54 Year
  Sex: Male
  Weight: 61 kg

DRUGS (8)
  1. OTERACIL POTASSIUM/GIMERACIL/TEGAFUR [Concomitant]
     Indication: CHEMOTHERAPY
     Route: 065
     Dates: start: 20160815, end: 20160815
  2. OTERACIL POTASSIUM/GIMERACIL/TEGAFUR [Concomitant]
     Indication: CHEMOTHERAPY
     Route: 065
     Dates: start: 20160802, end: 20160802
  3. ELOXATIN [Suspect]
     Active Substance: OXALIPLATIN
     Indication: NEOPLASM MALIGNANT
     Route: 041
     Dates: start: 20160802, end: 20160802
  4. TEGAFUR [Concomitant]
     Active Substance: TEGAFUR
     Indication: CHEMOTHERAPY
     Route: 041
     Dates: start: 20160815, end: 20160815
  5. GIMERACIL [Concomitant]
     Active Substance: GIMERACIL
     Indication: CHEMOTHERAPY
     Route: 065
     Dates: start: 20160802, end: 20160802
  6. ELOXATIN [Suspect]
     Active Substance: OXALIPLATIN
     Indication: NEOPLASM MALIGNANT
     Route: 051
     Dates: start: 20160815, end: 20160815
  7. TEGAFUR [Concomitant]
     Active Substance: TEGAFUR
     Indication: CHEMOTHERAPY
     Route: 041
     Dates: start: 20160802, end: 20160802
  8. GIMERACIL [Concomitant]
     Active Substance: GIMERACIL
     Indication: CHEMOTHERAPY
     Route: 065
     Dates: start: 20160815, end: 20160815

REACTIONS (1)
  - Bone marrow failure [Recovering/Resolving]

NARRATIVE: CASE EVENT DATE: 20160816
